FAERS Safety Report 21680362 (Version 1)
Quarter: 2022Q4

REPORT INFORMATION
  Report Type: Spontaneous
  Country: US (occurrence: US)
  Receive Date: 20221205
  Receipt Date: 20221205
  Transmission Date: 20230113
  Serious: Yes (Life-Threatening, Hospitalization, Other)
  Sender: FDA-Public Use
  Company Number: None

PATIENT
  Age: 41 Year
  Sex: Female

DRUGS (1)
  1. ETHOSUXIMIDE [Suspect]
     Active Substance: ETHOSUXIMIDE
     Indication: Product used for unknown indication
     Route: 048

REACTIONS (13)
  - Toxicity to various agents [Recovered/Resolved]
  - Blood potassium decreased [Recovered/Resolved]
  - Depressed level of consciousness [Recovered/Resolved]
  - Pneumonia staphylococcal [Recovered/Resolved]
  - Bacteraemia [Recovered/Resolved]
  - Heart rate increased [Recovered/Resolved]
  - Blood pressure diastolic decreased [Recovered/Resolved]
  - Anion gap increased [Recovered/Resolved]
  - Blood lactic acid increased [Recovered/Resolved]
  - Muscle rigidity [Recovered/Resolved]
  - Blood ethanol increased [Recovered/Resolved]
  - Blood pH decreased [Recovered/Resolved]
  - Intentional overdose [Unknown]
